FAERS Safety Report 23499214 (Version 3)
Quarter: 2024Q1

REPORT INFORMATION
  Report Type: Report from Study
  Country: US (occurrence: US)
  Receive Date: 20240208
  Receipt Date: 20240319
  Transmission Date: 20240410
  Serious: Yes (Hospitalization)
  Sender: FDA-Public Use
  Company Number: US-ABBVIE-5623743

PATIENT
  Sex: Female

DRUGS (2)
  1. IMBRUVICA [Suspect]
     Active Substance: IBRUTINIB
     Indication: Brain neoplasm malignant
     Dosage: TIME INTERVAL: 0.33333333 DAYS: 140 MG?LAST ADMIN DATE 2024
     Route: 048
     Dates: start: 20240120
  2. IMBRUVICA [Suspect]
     Active Substance: IBRUTINIB
     Indication: Brain neoplasm malignant
     Dosage: TIME INTERVAL: 0.33333333 DAYS
     Route: 048
     Dates: start: 202311

REACTIONS (10)
  - Radiation injury [Unknown]
  - Intensive care [Not Recovered/Not Resolved]
  - Faecaloma [Unknown]
  - Confusional state [Unknown]
  - Dehydration [Unknown]
  - Anxiety [Unknown]
  - Constipation [Unknown]
  - Disorientation [Unknown]
  - Stomatitis [Unknown]
  - Emotional disorder [Unknown]

NARRATIVE: CASE EVENT DATE: 20240101
